FAERS Safety Report 4310794-1 (Version None)
Quarter: 2004Q1

REPORT INFORMATION
  Report Type: 
  Country: None (occurrence: None)
  Receive Date: 20040302
  Receipt Date: 20040219
  Transmission Date: 20041129
  Serious: Yes (Hospitalization)
  Sender: FDA-Public Use
  Company Number: 204101

PATIENT
  Age: 58 Year
  Sex: Male
  Weight: 73.5 kg

DRUGS (5)
  1. RITUXAN [Suspect]
     Indication: LYMPHOMA
     Dosage: INTRAVENOUS
     Route: 042
     Dates: start: 20031029
  2. CISPLATIN [Suspect]
     Indication: NON-HODGKIN'S LYMPHOMA
     Dates: start: 20031029, end: 20031210
  3. DEXAMETHASONE [Suspect]
     Indication: NON-HODGKIN'S LYMPHOMA
     Dates: start: 20031029, end: 20031210
  4. CYTARABINE [Suspect]
     Indication: NON-HODGKIN'S LYMPHOMA
     Dosage: ORAL
     Route: 048
     Dates: start: 20031029, end: 20031210
  5. COZAAR [Suspect]
     Indication: HYPERTENSION
     Dosage: 50 MG
     Dates: start: 20000615, end: 20031216

REACTIONS (9)
  - ANOREXIA [None]
  - ASTHENIA [None]
  - BONE MARROW DEPRESSION [None]
  - DEHYDRATION [None]
  - HYPOCALCAEMIA [None]
  - NEPHROPATHY TOXIC [None]
  - RENAL FAILURE ACUTE [None]
  - VOMITING [None]
  - WEIGHT DECREASED [None]
